FAERS Safety Report 11347149 (Version 1)
Quarter: 2015Q3

REPORT INFORMATION
  Report Type: Report from Study
  Country: BR (occurrence: BR)
  Receive Date: 20150806
  Receipt Date: 20150806
  Transmission Date: 20151125
  Serious: Yes (Hospitalization)
  Sender: FDA-Public Use
  Company Number: BR-ABBVIE-15K-020-1436732-00

PATIENT
  Sex: Male
  Weight: 100 kg

DRUGS (5)
  1. METHOTREXATE [Concomitant]
     Active Substance: METHOTREXATE
     Indication: SKIN DISORDER
     Route: 050
     Dates: start: 20120601
  2. FERROUS SULFATE [Concomitant]
     Active Substance: FERROUS SULFATE\FERROUS SULFATE, DRIED
     Indication: PSORIATIC ARTHROPATHY
     Route: 048
     Dates: start: 20120601
  3. HUMIRA [Suspect]
     Active Substance: ADALIMUMAB
     Indication: PSORIATIC ARTHROPATHY
     Route: 058
     Dates: start: 20120601, end: 2013
  4. HUMIRA [Suspect]
     Active Substance: ADALIMUMAB
     Route: 058
  5. OMEPRAZOLE. [Concomitant]
     Active Substance: OMEPRAZOLE
     Indication: NAUSEA
     Route: 048
     Dates: start: 2013

REACTIONS (13)
  - Nausea [Unknown]
  - Erysipelas [Recovered/Resolved]
  - Psoriasis [Not Recovered/Not Resolved]
  - Peripheral swelling [Unknown]
  - Musculoskeletal stiffness [Unknown]
  - Skin discolouration [Not Recovered/Not Resolved]
  - Vitamin D deficiency [Unknown]
  - Blood glucose increased [Unknown]
  - Drug ineffective [Not Recovered/Not Resolved]
  - Skin exfoliation [Recovered/Resolved]
  - Poor peripheral circulation [Not Recovered/Not Resolved]
  - Blood triglycerides increased [Unknown]
  - Pain [Unknown]

NARRATIVE: CASE EVENT DATE: 2013
